APPROVED DRUG PRODUCT: CARVEDILOL
Active Ingredient: CARVEDILOL
Strength: 6.25MG
Dosage Form/Route: TABLET;ORAL
Application: A077780 | Product #002
Applicant: TARO PHARMACEUTICAL INDUSTRIES LTD
Approved: Sep 5, 2007 | RLD: No | RS: No | Type: DISCN